FAERS Safety Report 13989302 (Version 2)
Quarter: 2017Q3

REPORT INFORMATION
  Report Type: Spontaneous
  Country: US (occurrence: US)
  Receive Date: 20170920
  Receipt Date: 20170926
  Transmission Date: 20171128
  Serious: No
  Sender: FDA-Public Use
  Company Number: US-AMGEN-USASL2017126856

PATIENT
  Sex: Male
  Weight: 3.32 kg

DRUGS (3)
  1. ENBREL [Suspect]
     Active Substance: ETANERCEPT
     Indication: EXPOSURE DURING BREAST FEEDING
     Dosage: 50 MG, QWK
     Route: 063
     Dates: start: 20150826
  2. SULFASALAZINE. [Concomitant]
     Active Substance: SULFASALAZINE
     Indication: EXPOSURE DURING BREAST FEEDING
     Dosage: 500 MG, QD
     Route: 063
     Dates: start: 201401
  3. PLAQUENIL [Concomitant]
     Active Substance: HYDROXYCHLOROQUINE SULFATE
     Indication: EXPOSURE DURING BREAST FEEDING
     Dosage: 200 MG, QD
     Route: 063
     Dates: start: 201401

REACTIONS (2)
  - Exposure during breast feeding [Recovered/Resolved]
  - Gastrooesophageal reflux disease [Unknown]

NARRATIVE: CASE EVENT DATE: 201612
